FAERS Safety Report 6314695-9 (Version None)
Quarter: 2009Q3

REPORT INFORMATION
  Report Type: 
  Country: None (occurrence: None)
  Receive Date: 20090819
  Receipt Date: 20090811
  Transmission Date: 20100115
  Serious: Yes (Disabling)
  Sender: FDA-Public Use
  Company Number: RS-BAYER-200927983GPV

PATIENT
  Age: 28 Year
  Sex: Female

DRUGS (1)
  1. YAZ [Suspect]
     Indication: CONTRACEPTION
     Route: 048

REACTIONS (5)
  - ASTHENIA [None]
  - DYSSTASIA [None]
  - HEADACHE [None]
  - PAIN IN EXTREMITY [None]
  - VOMITING [None]
